FAERS Safety Report 5040427-0 (Version None)
Quarter: 2006Q2

REPORT INFORMATION
  Report Type: 
  Country: None (occurrence: None)
  Receive Date: 20060630
  Receipt Date: 20060609
  Transmission Date: 20061013
  Serious: Yes (Other)
  Sender: FDA-Public Use
  Company Number: DE-GLAXOSMITHKLINE-D0050000A

PATIENT
  Age: 59 Year
  Sex: Female

DRUGS (1)
  1. ELMENDOS [Suspect]
     Indication: BIPOLAR DISORDER
     Dosage: 100MG PER DAY
     Route: 048
     Dates: start: 20060301

REACTIONS (3)
  - DYSPHONIA [None]
  - LARYNGEAL OEDEMA [None]
  - VOCAL CORD DISORDER [None]
